FAERS Safety Report 9871131 (Version 2)
Quarter: 2014Q1

REPORT INFORMATION
  Report Type: Spontaneous
  Country: US (occurrence: US)
  Receive Date: 20140205
  Receipt Date: 20140205
  Transmission Date: 20141002
  Serious: No
  Sender: FDA-Public Use
  Company Number: US-GILEAD-2013-0077909

PATIENT
  Age: 60 Year
  Sex: Male
  Weight: 87.53 kg

DRUGS (2)
  1. STRIBILD [Suspect]
     Indication: HIV INFECTION
     Dosage: UNK
     Dates: start: 20130506
  2. STRIBILD [Suspect]
     Indication: OFF LABEL USE

REACTIONS (1)
  - Rash maculo-papular [Recovered/Resolved]
